FAERS Safety Report 4939449-7 (Version None)
Quarter: 2006Q1

REPORT INFORMATION
  Report Type: 
  Country: None (occurrence: None)
  Receive Date: 20060306
  Receipt Date: 20060227
  Transmission Date: 20060701
  Serious: Yes (Death, Hospitalization)
  Sender: FDA-Public Use
  Company Number: FR_051107434

PATIENT
  Age: 51 Year
  Sex: Female
  Weight: 67 kg

DRUGS (5)
  1. GEMZAR [Suspect]
     Indication: NON-SMALL CELL LUNG CANCER
     Dosage: 1250 MG/M2, OTHER, INTRAVENOUS
     Route: 042
     Dates: end: 20050624
  2. ARANESP [Concomitant]
  3. PREVISCAN (FLUINDIONE) [Concomitant]
  4. OMEPRAZOLE [Concomitant]
  5. FERROUS FUMARATE [Concomitant]

REACTIONS (6)
  - ASTHENIA [None]
  - BLOOD PH INCREASED [None]
  - PNEUMONITIS [None]
  - RALES [None]
  - RESPIRATORY DISORDER [None]
  - TACHYPNOEA [None]
